FAERS Safety Report 10437968 (Version 1)
Quarter: 2014Q3

REPORT INFORMATION
  Report Type: Spontaneous
  Country: US (occurrence: None)
  Receive Date: 20140905
  Receipt Date: 20140905
  Transmission Date: 20150326
  Serious: Yes (Hospitalization)
  Sender: FDA-Public Use
  Company Number: None

PATIENT
  Age: 63 Year
  Sex: Male
  Weight: 83.9 kg

DRUGS (19)
  1. LANSOPROAZOLE [Concomitant]
  2. CIPRO [Concomitant]
     Active Substance: CIPROFLOXACIN HYDROCHLORIDE
  3. VITAMIN D3 [Concomitant]
     Active Substance: CHOLECALCIFEROL
  4. LASIX [Concomitant]
     Active Substance: FUROSEMIDE
  5. SOFASBUVIR [Suspect]
     Active Substance: SOFOSBUVIR
     Indication: HEPATITIS C
     Dosage: 400, 2X DAILY, ORAL
     Route: 048
     Dates: start: 20140605
  6. NEURONTIN [Concomitant]
     Active Substance: GABAPENTIN
  7. ALDACTONE [Concomitant]
     Active Substance: SPIRONOLACTONE
  8. ZINCATE [Concomitant]
  9. VANCOMYCIN [Concomitant]
     Active Substance: VANCOMYCIN
  10. RIBAVIRIN. [Suspect]
     Active Substance: RIBAVIRIN
     Indication: HEPATITIS C
     Dosage: 400 1X DAILY, ORAL
     Route: 048
     Dates: start: 20140605
  11. INSULIN LISPRO [Concomitant]
     Active Substance: INSULIN LISPRO
  12. LACTULOSE. [Concomitant]
     Active Substance: LACTULOSE
  13. RIFAXIMIN [Concomitant]
     Active Substance: RIFAXIMIN
  14. CEFEPIME [Concomitant]
     Active Substance: CEFEPIME\CEFEPIME HYDROCHLORIDE
  15. VITAMIN D [Concomitant]
     Active Substance: CHOLECALCIFEROL
  16. VITAMIN A [Concomitant]
     Active Substance: VITAMIN A
  17. LANTUS [Concomitant]
     Active Substance: INSULIN GLARGINE
  18. ZOLOFT [Concomitant]
     Active Substance: SERTRALINE HYDROCHLORIDE
  19. PROCRIT [Concomitant]
     Active Substance: ERYTHROPOIETIN

REACTIONS (13)
  - Infection [None]
  - Urinary tract infection [None]
  - Blood glucose increased [None]
  - Hepatic lesion [None]
  - Hallucination [None]
  - Hyponatraemia [None]
  - Renal failure acute [None]
  - Abdominal pain [None]
  - Decreased appetite [None]
  - Diarrhoea [None]
  - Enterococcus test positive [None]
  - Hepatic encephalopathy [None]
  - Ascites [None]

NARRATIVE: CASE EVENT DATE: 20140625
